FAERS Safety Report 9149940 (Version 1)
Quarter: 2013Q1

REPORT INFORMATION
  Report Type: Spontaneous
  Country: US (occurrence: US)
  Receive Date: 20130308
  Receipt Date: 20130308
  Transmission Date: 20140127
  Serious: No
  Sender: FDA-Public Use
  Company Number: US-ENDO PHARMACEUTICALS INC.-OPCR20121084

PATIENT
  Sex: Female

DRUGS (5)
  1. OPANA ER [Suspect]
     Indication: PRODUCT USED FOR UNKNOWN INDICATION
     Dosage: 40 MG
     Route: 048
     Dates: start: 2012
  2. OPANA ER [Suspect]
     Dosage: 20 MG
     Route: 048
     Dates: start: 2012
  3. OPANA ER [Concomitant]
  4. OPANA [Concomitant]
  5. OPANA [Concomitant]

REACTIONS (1)
  - Medication residue present [Not Recovered/Not Resolved]
